FAERS Safety Report 8174786-7 (Version None)
Quarter: 2012Q1

REPORT INFORMATION
  Report Type: 
  Country: None (occurrence: None)
  Receive Date: 20120229
  Receipt Date: 20120224
  Transmission Date: 20120608
  Serious: Yes (Other)
  Sender: FDA-Public Use
  Company Number: US-PFIZER INC-2012048735

PATIENT
  Age: 19 Year
  Sex: Male
  Weight: 71 kg

DRUGS (1)
  1. CRIZOTINIB [Suspect]
     Indication: NEUROBLASTOMA
     Dosage: TREATMENT #40: 215 MG/M2/DOSE, 2X/DAY
     Route: 048
     Dates: start: 20110823

REACTIONS (1)
  - FLATULENCE [None]
